FAERS Safety Report 6809927-4 (Version None)
Quarter: 2010Q2

REPORT INFORMATION
  Report Type: 
  Country: None (occurrence: None)
  Receive Date: 20100630
  Receipt Date: 20100618
  Transmission Date: 20101027
  Serious: Yes (Death, Hospitalization)
  Sender: FDA-Public Use
  Company Number: A0802186A

PATIENT
  Age: 62 Year
  Sex: Female

DRUGS (8)
  1. AVANDIA [Suspect]
     Dosage: 8MG PER DAY
     Route: 048
     Dates: start: 20001117, end: 20071025
  2. PRAVACHOL [Concomitant]
  3. ZESTRIL [Concomitant]
  4. PREVACID [Concomitant]
  5. LEXAPRO [Concomitant]
  6. HUMULIN R [Concomitant]
  7. GLUCOPHAGE [Concomitant]
  8. CORDARONE [Concomitant]

REACTIONS (5)
  - CARDIAC FAILURE CONGESTIVE [None]
  - CEREBROVASCULAR ACCIDENT [None]
  - CORONARY ARTERY DISEASE [None]
  - MYOCARDIAL INFARCTION [None]
  - TRANSIENT ISCHAEMIC ATTACK [None]
